FAERS Safety Report 7810042-1 (Version None)
Quarter: 2011Q4

REPORT INFORMATION
  Report Type: 
  Country: None (occurrence: None)
  Receive Date: 20111012
  Receipt Date: 20110810
  Transmission Date: 20120403
  Serious: No
  Sender: FDA-Public Use
  Company Number: US-GLAXOSMITHKLINE-A0940377A

PATIENT
  Age: 70 Year
  Sex: Male

DRUGS (3)
  1. JALYN [Suspect]
     Indication: PROSTATOMEGALY
     Route: 048
     Dates: end: 20110710
  2. VESICARE [Suspect]
     Dates: end: 20110801
  3. NO CONCURRENT MEDICATION [Concomitant]

REACTIONS (1)
  - DRUG INEFFECTIVE [None]
